FAERS Safety Report 22321287 (Version 1)
Quarter: 2023Q2

REPORT INFORMATION
  Report Type: Spontaneous
  Country: CN (occurrence: None)
  Receive Date: 20230515
  Receipt Date: 20230515
  Transmission Date: 20230721
  Serious: Yes (Other)
  Sender: FDA-Public Use
  Company Number: CN-ROCHE-3347447

PATIENT
  Age: 55 Year
  Sex: Female

DRUGS (24)
  1. ATEZOLIZUMAB [Suspect]
     Active Substance: ATEZOLIZUMAB
     Indication: Hepatic cancer
     Route: 065
     Dates: start: 2022
  2. ATEZOLIZUMAB [Suspect]
     Active Substance: ATEZOLIZUMAB
     Route: 065
     Dates: start: 2022
  3. ATEZOLIZUMAB [Suspect]
     Active Substance: ATEZOLIZUMAB
     Route: 065
     Dates: start: 2022
  4. ATEZOLIZUMAB [Suspect]
     Active Substance: ATEZOLIZUMAB
     Dosage: DONAFENIB AND ATEZOLIZUMAB (UNSPECIFIED TIME)
     Route: 065
  5. ATEZOLIZUMAB [Suspect]
     Active Substance: ATEZOLIZUMAB
     Route: 065
     Dates: start: 2023
  6. DONAFENIB [Concomitant]
     Indication: Hepatic cancer
     Route: 048
     Dates: start: 2022
  7. DONAFENIB [Concomitant]
     Route: 048
     Dates: start: 2023
  8. DONAFENIB [Concomitant]
     Dosage: DONAFENIB AND ATEZOLIZUMAB (UNSPECIFIED TIME)
     Route: 048
  9. PIRARUBICIN HYDROCHLORIDE [Concomitant]
     Active Substance: PIRARUBICIN HYDROCHLORIDE
     Indication: Hepatic cancer
     Dates: start: 20220816
  10. PIRARUBICIN HYDROCHLORIDE [Concomitant]
     Active Substance: PIRARUBICIN HYDROCHLORIDE
     Dates: start: 20220913
  11. PIRARUBICIN HYDROCHLORIDE [Concomitant]
     Active Substance: PIRARUBICIN HYDROCHLORIDE
     Dates: start: 20221020
  12. PIRARUBICIN HYDROCHLORIDE [Concomitant]
     Active Substance: PIRARUBICIN HYDROCHLORIDE
     Dates: start: 20221125
  13. PIRARUBICIN HYDROCHLORIDE [Concomitant]
     Active Substance: PIRARUBICIN HYDROCHLORIDE
     Dates: start: 20230214
  14. LIPIODOL ULTRA-FLUID [Concomitant]
     Indication: Hepatic cancer
     Dates: start: 20220816
  15. LIPIODOL ULTRA-FLUID [Concomitant]
     Dates: start: 20220913
  16. LIPIODOL ULTRA-FLUID [Concomitant]
     Dates: start: 20221020
  17. LIPIODOL ULTRA-FLUID [Concomitant]
     Dates: start: 20221125
  18. LIPIODOL ULTRA-FLUID [Concomitant]
     Dates: start: 20230214
  19. OXALIPLATIN [Concomitant]
     Active Substance: OXALIPLATIN
     Indication: Hepatic cancer
     Dosage: 3-WEEK REGIMEN
     Dates: start: 20220816
  20. OXALIPLATIN [Concomitant]
     Active Substance: OXALIPLATIN
     Dosage: 3-WEEK REGIMEN
     Dates: start: 20220913
  21. LEUCOVORIN CALCIUM [Concomitant]
     Active Substance: LEUCOVORIN CALCIUM
     Dosage: 3-WEEK REGIMEN
     Dates: start: 20220816
  22. LEUCOVORIN CALCIUM [Concomitant]
     Active Substance: LEUCOVORIN CALCIUM
     Dosage: 3-WEEK REGIMEN
     Dates: start: 20220913
  23. FLUOROURACIL [Concomitant]
     Active Substance: FLUOROURACIL
     Indication: Hepatic cancer
     Dosage: 3-WEEK REGIMEN
     Dates: start: 20220816
  24. FLUOROURACIL [Concomitant]
     Active Substance: FLUOROURACIL
     Dosage: 3-WEEK REGIMEN
     Dates: start: 20220913

REACTIONS (6)
  - Nausea [Recovering/Resolving]
  - Vomiting [Recovering/Resolving]
  - Abdominal pain [Recovering/Resolving]
  - Palmar-plantar erythrodysaesthesia syndrome [Recovering/Resolving]
  - Rash [Recovering/Resolving]
  - Off label use [Unknown]
